FAERS Safety Report 4914209-1 (Version None)
Quarter: 2006Q1

REPORT INFORMATION
  Report Type: 
  Country: None (occurrence: None)
  Receive Date: 20060113
  Receipt Date: 20051104
  Transmission Date: 20060701
  Serious: No
  Sender: FDA-Public Use
  Company Number: 2005SP003854

PATIENT
  Age: 39 Year
  Sex: Female

DRUGS (6)
  1. LUNESTA [Suspect]
     Indication: FIBROMYALGIA
     Dosage: 3 MG;  HS; ORAL
     Route: 048
     Dates: start: 20050101, end: 20050101
  2. LUNESTA [Suspect]
     Indication: INSOMNIA
     Dosage: 3 MG;  HS; ORAL
     Route: 048
     Dates: start: 20050101, end: 20050101
  3. FLEXERIL [Concomitant]
  4. VICODIN [Concomitant]
  5. FLOVENT [Concomitant]
  6. MARIJUANA [Concomitant]

REACTIONS (4)
  - DYSGEUSIA [None]
  - FEELING ABNORMAL [None]
  - INSOMNIA [None]
  - MYASTHENIC SYNDROME [None]
